FAERS Safety Report 5561543-0 (Version None)
Quarter: 2007Q4

REPORT INFORMATION
  Report Type: 
  Country: None (occurrence: None)
  Receive Date: 20071215
  Receipt Date: 20071018
  Transmission Date: 20080405
  Serious: No
  Sender: FDA-Public Use
  Company Number: US-AMGEN-KDL248733

PATIENT
  Sex: Male

DRUGS (1)
  1. ENBREL [Suspect]
     Indication: PSORIASIS
     Route: 058
     Dates: start: 20070317

REACTIONS (6)
  - DYSURIA [None]
  - NOCTURIA [None]
  - PENILE HAEMORRHAGE [None]
  - TESTICULAR DISORDER [None]
  - URINARY INCONTINENCE [None]
  - URINE FLOW DECREASED [None]
